FAERS Safety Report 16698291 (Version 1)
Quarter: 2019Q3

REPORT INFORMATION
  Report Type: Spontaneous
  Country: IT (occurrence: IT)
  Receive Date: 20190813
  Receipt Date: 20190813
  Transmission Date: 20191004
  Serious: Yes (Other)
  Sender: FDA-Public Use
  Company Number: IT-009507513-1908ITA004301

PATIENT
  Age: 66 Year
  Sex: Male

DRUGS (2)
  1. LENVATINIB [Concomitant]
     Active Substance: LENVATINIB
     Indication: RENAL CANCER
  2. PEMBROLIZUMAB. [Suspect]
     Active Substance: PEMBROLIZUMAB
     Indication: RENAL CANCER

REACTIONS (2)
  - Myositis [Recovering/Resolving]
  - Orbital myositis [Recovering/Resolving]
